FAERS Safety Report 4444920-0 (Version None)
Quarter: 2004Q3

REPORT INFORMATION
  Report Type: 
  Country: None (occurrence: None)
  Receive Date: 20040903
  Receipt Date: 20040826
  Transmission Date: 20050211
  Serious: Yes (Hospitalization)
  Sender: FDA-Public Use
  Company Number: CIP04001629

PATIENT
  Age: 79 Year
  Sex: Female

DRUGS (6)
  1. ACTONEL [Suspect]
     Indication: OSTEOPOROSIS
     Dosage: 35 MG ONCE WEEKLY, ORAL
     Route: 048
     Dates: start: 20040203, end: 20040425
  2. KEFLEX [Concomitant]
  3. ERGODRYL MONO (ERGOTAMINE TARTRATE) [Concomitant]
  4. MEXITIL [Concomitant]
  5. PLAQUENIL [Concomitant]
  6. PARANONE (CHLORMEZANONE) [Concomitant]

REACTIONS (3)
  - HAEMATEMESIS [None]
  - MALLORY-WEISS SYNDROME [None]
  - MELAENA [None]
